FAERS Safety Report 11619127 (Version 7)
Quarter: 2015Q4

REPORT INFORMATION
  Report Type: Report from Study
  Country: IE (occurrence: IE)
  Receive Date: 20151012
  Receipt Date: 20151110
  Transmission Date: 20160304
  Serious: Yes (Hospitalization)
  Sender: FDA-Public Use
  Company Number: IE-SA-2015SA157489

PATIENT
  Age: 43 Year
  Sex: Female

DRUGS (6)
  1. MYOZYME [Suspect]
     Active Substance: ALGLUCOSIDASE ALFA
     Indication: GLYCOGEN STORAGE DISEASE TYPE II
     Route: 041
     Dates: start: 20150714, end: 20151005
  2. ELTROXIN [Concomitant]
     Active Substance: LEVOTHYROXINE
     Dosage: 100MCG DAILY FOR 5 DAYS
  3. PIRITON [Concomitant]
     Active Substance: CHLORPHENIRAMINE MALEATE
     Dosage: 4MG 1 HOUR PRE-INFUSION
  4. MYOZYME [Suspect]
     Active Substance: ALGLUCOSIDASE ALFA
     Indication: GLYCOGEN STORAGE DISEASE TYPE II
     Route: 041
     Dates: start: 20150714, end: 20151005
  5. PARACETAMOL [Concomitant]
     Active Substance: ACETAMINOPHEN
     Dosage: 1G 1 HOUR PRE-INFUSION
  6. ELTROXIN [Concomitant]
     Active Substance: LEVOTHYROXINE
     Dosage: 125MCG DAILY FOR 2 DAYS

REACTIONS (9)
  - Vision blurred [Not Recovered/Not Resolved]
  - Off label use [Unknown]
  - Crying [Unknown]
  - Feeling abnormal [Not Recovered/Not Resolved]
  - Dizziness [Not Recovered/Not Resolved]
  - Nausea [Not Recovered/Not Resolved]
  - Hypersensitivity [Unknown]
  - Malaise [Not Recovered/Not Resolved]
  - Dysgeusia [Not Recovered/Not Resolved]

NARRATIVE: CASE EVENT DATE: 201510
